FAERS Safety Report 15459369 (Version 1)
Quarter: 2018Q4

REPORT INFORMATION
  Report Type: Spontaneous
  Country: PE (occurrence: PE)
  Receive Date: 20181003
  Receipt Date: 20181003
  Transmission Date: 20190204
  Serious: Yes (Other)
  Sender: FDA-Public Use
  Company Number: PE-GLAXOSMITHKLINE-PE2018GSK177656

PATIENT
  Age: 74 Year
  Sex: Female

DRUGS (2)
  1. RELVAR ELLIPTA [Suspect]
     Active Substance: FLUTICASONE FUROATE\VILANTEROL TRIFENATATE
     Indication: ASTHMA
     Dosage: 1 PUFF(S), 1D
     Route: 055
     Dates: start: 20180926
  2. CORTIPREX [Concomitant]
     Indication: PRODUCT USED FOR UNKNOWN INDICATION
     Dosage: 1 DF, 1D
     Route: 048

REACTIONS (2)
  - Wrong dose [Unknown]
  - Drowning [Recovered/Resolved]

NARRATIVE: CASE EVENT DATE: 20180926
